FAERS Safety Report 6637970-7 (Version None)
Quarter: 2010Q1

REPORT INFORMATION
  Report Type: 
  Country: None (occurrence: None)
  Receive Date: 20100315
  Receipt Date: 20100315
  Transmission Date: 20100710
  Serious: Yes (Other)
  Sender: FDA-Public Use
  Company Number: None

PATIENT
  Age: 71 Year
  Sex: Male
  Weight: 95.2554 kg

DRUGS (1)
  1. ZETIA [Suspect]
     Indication: BLOOD CHOLESTEROL DECREASED
     Dosage: 10 MG PER DAY PO
     Route: 048
     Dates: start: 20050601, end: 20100201

REACTIONS (3)
  - PAIN IN EXTREMITY [None]
  - PARKINSON'S DISEASE [None]
  - TREMOR [None]
